FAERS Safety Report 9714009 (Version 2)
Quarter: 2015Q3

REPORT INFORMATION
  Report Type: Spontaneous
  Country: US (occurrence: US)
  Receive Date: 20131126
  Receipt Date: 20150803
  Transmission Date: 20151125
  Serious: No
  Sender: FDA-Public Use
  Company Number: US-GILEAD-2008-0018562

PATIENT
  Age: 61 Year
  Sex: Female
  Weight: 85.27 kg

DRUGS (11)
  1. LETAIRIS [Suspect]
     Active Substance: AMBRISENTAN
     Indication: PULMONARY ARTERIAL HYPERTENSION
     Route: 048
     Dates: start: 20080829
  2. LASIX [Concomitant]
     Active Substance: FUROSEMIDE
  3. CITALOPRAM [Concomitant]
     Active Substance: CITALOPRAM HYDROBROMIDE
  4. CENTRUM SILVER [Concomitant]
     Active Substance: VITAMINS
  5. ALBUTEROL. [Concomitant]
     Active Substance: ALBUTEROL
  6. ASPIRIN. [Concomitant]
     Active Substance: ASPIRIN
  7. PRILOSEC [Concomitant]
     Active Substance: OMEPRAZOLE MAGNESIUM
  8. LANTUS [Concomitant]
     Active Substance: INSULIN GLARGINE
  9. MULTIVITAMIN [Concomitant]
     Active Substance: VITAMINS
  10. MAG-OX [Concomitant]
     Active Substance: MAGNESIUM OXIDE
  11. FOLTRIN [Concomitant]

REACTIONS (1)
  - Nasal congestion [None]
